FAERS Safety Report 6373852-6 (Version None)
Quarter: 2009Q3

REPORT INFORMATION
  Report Type: 
  Country: None (occurrence: None)
  Receive Date: 20090924
  Receipt Date: 20090602
  Transmission Date: 20100115
  Serious: No
  Sender: FDA-Public Use
  Company Number: US-ASTRAZENECA-2009UW14062

PATIENT
  Age: 28 Year
  Sex: Male

DRUGS (1)
  1. SEROQUEL XR [Suspect]
     Dosage: 50 MG
     Route: 048

REACTIONS (2)
  - ABNORMAL BEHAVIOUR [None]
  - AGITATION [None]
